FAERS Safety Report 13549527 (Version 1)
Quarter: 2017Q2

REPORT INFORMATION
  Report Type: Spontaneous
  Country: US (occurrence: US)
  Receive Date: 20170516
  Receipt Date: 20170516
  Transmission Date: 20170830
  Serious: No
  Sender: FDA-Public Use
  Company Number: US-TEVA-732599ACC

PATIENT
  Sex: Male

DRUGS (1)
  1. NEOMYCIN W/POLYMYXIN B/PRAMOXINE [Suspect]
     Active Substance: NEOMYCIN\POLYMYXIN B\PRAMOXINE HYDROCHLORIDE

REACTIONS (2)
  - Skin irritation [Unknown]
  - Rash [Unknown]
